FAERS Safety Report 5015411-3 (Version None)
Quarter: 2006Q2

REPORT INFORMATION
  Report Type: 
  Country: None (occurrence: None)
  Receive Date: 20060530
  Receipt Date: 20060530
  Transmission Date: 20061013
  Serious: Yes (Other)
  Sender: FDA-Public Use
  Company Number: None

PATIENT
  Age: 87 Year
  Sex: Male
  Weight: 60.8 kg

DRUGS (12)
  1. OXYBUTYNIN CHLORIDE [Suspect]
  2. CLOTRIMAZOLE [Concomitant]
  3. ALBUTEROL [Concomitant]
  4. IPRATROPIUM BROMIDE INHL [Concomitant]
  5. CATHETER, EXTERNAL [Concomitant]
  6. TRAVOPROST [Concomitant]
  7. LISINOPRIL [Concomitant]
  8. DORZOLAMIDE HCL [Concomitant]
  9. FELODIPINE [Concomitant]
  10. TRIAMCINOLONE INHL [Concomitant]
  11. TIMOLOL MALEATE [Concomitant]
  12. TOLTERODINE TARTRATE [Concomitant]

REACTIONS (2)
  - DRY MOUTH [None]
  - VISION BLURRED [None]
